FAERS Safety Report 5190636-5 (Version None)
Quarter: 2006Q4

REPORT INFORMATION
  Report Type: 
  Country: None (occurrence: None)
  Receive Date: 20061222
  Receipt Date: 20061018
  Transmission Date: 20070319
  Serious: Yes (Hospitalization)
  Sender: FDA-Public Use
  Company Number: US-BRISTOL-MYERS SQUIBB COMPANY-13545850

PATIENT
  Age: 78 Year
  Sex: Female
  Weight: 61 kg

DRUGS (6)
  1. ORENCIA [Suspect]
     Indication: RHEUMATOID ARTHRITIS
     Route: 042
     Dates: start: 20060727
  2. PROTONIX [Concomitant]
     Dates: start: 20060101
  3. PREDNISONE TAB [Concomitant]
     Dates: start: 20060101
  4. CENTRUM SILVER [Concomitant]
  5. CALTRATE + D [Concomitant]
     Dates: start: 20050101
  6. FOSAMAX [Concomitant]

REACTIONS (7)
  - ASTHENIA [None]
  - BLOOD PRESSURE INCREASED [None]
  - DIARRHOEA [None]
  - DIZZINESS [None]
  - HEADACHE [None]
  - NAUSEA [None]
  - THYROID FUNCTION TEST ABNORMAL [None]
